FAERS Safety Report 5951580-6 (Version None)
Quarter: 2008Q4

REPORT INFORMATION
  Report Type: 
  Country: None (occurrence: None)
  Receive Date: 20081113
  Receipt Date: 20081103
  Transmission Date: 20090506
  Serious: Yes (Death, Hospitalization)
  Sender: FDA-Public Use
  Company Number: PHEH2008US10143

PATIENT
  Age: 72 Year
  Sex: Female

DRUGS (1)
  1. RECLAST [Suspect]
     Indication: OSTEOPOROSIS
     Dosage: 5 MG, ONCE/SINGLE
     Route: 042
     Dates: start: 20081006

REACTIONS (6)
  - ABDOMINAL PAIN [None]
  - CHILLS [None]
  - HEPATIC ENZYME ABNORMAL [None]
  - HEPATIC NEOPLASM [None]
  - PAIN [None]
  - RENAL FAILURE [None]
